FAERS Safety Report 7552524-6 (Version None)
Quarter: 2011Q2

REPORT INFORMATION
  Report Type: 
  Country: None (occurrence: None)
  Receive Date: 20110616
  Receipt Date: 20110603
  Transmission Date: 20111010
  Serious: Yes (Hospitalization, Other)
  Sender: FDA-Public Use
  Company Number: US-ELI_LILLY_AND_COMPANY-US201103004215

PATIENT
  Sex: Female

DRUGS (3)
  1. FORTEO [Suspect]
     Dosage: 20 UG, QD
     Route: 058
  2. FORTEO [Suspect]
     Indication: OSTEOPOROSIS
     Dosage: 20 UG, QD
     Route: 058
     Dates: start: 20101001
  3. FORTEO [Suspect]
     Dosage: 20 UG, QD

REACTIONS (9)
  - LUNG DISORDER [None]
  - HYPOKINESIA [None]
  - WEIGHT BEARING DIFFICULTY [None]
  - FALL [None]
  - LIMB INJURY [None]
  - PAIN [None]
  - DYSPNOEA [None]
  - HIP FRACTURE [None]
  - INFLAMMATION [None]
